FAERS Safety Report 8355063-8 (Version None)
Quarter: 2012Q2

REPORT INFORMATION
  Report Type: 
  Country: None (occurrence: None)
  Receive Date: 20120511
  Receipt Date: 20120502
  Transmission Date: 20120825
  Serious: Yes (Hospitalization, Other)
  Sender: FDA-Public Use
  Company Number: CA-JNJFOC-20100907145

PATIENT
  Sex: Male
  Weight: 68.6 kg

DRUGS (3)
  1. PURINETHOL [Concomitant]
  2. PANTOPRAZOLE SODIUM [Concomitant]
  3. REMICADE [Suspect]
     Indication: CROHN'S DISEASE
     Route: 042
     Dates: start: 20090422, end: 20110701

REACTIONS (2)
  - HEPATIC CIRRHOSIS [None]
  - RECTAL CANCER [None]
